FAERS Safety Report 8390858-6 (Version None)
Quarter: 2012Q2

REPORT INFORMATION
  Report Type: 
  Country: None (occurrence: None)
  Receive Date: 20120529
  Receipt Date: 20120522
  Transmission Date: 20120825
  Serious: No
  Sender: FDA-Public Use
  Company Number: US-ASTRAZENECA-2011SE41511

PATIENT
  Age: 52 Year
  Sex: Female

DRUGS (26)
  1. PROTONIX [Concomitant]
     Indication: GASTROOESOPHAGEAL REFLUX DISEASE
     Dates: start: 20010101, end: 20030101
  2. TAGAMET [Concomitant]
  3. VITAMIN D [Concomitant]
     Indication: OSTEOPENIA
  4. EMTRICITABIN [Concomitant]
  5. BYPROPION SR [Concomitant]
  6. ACETAMINOPHEN [Concomitant]
     Dosage: 7.5/325 MG EVERY 8 HOURS AS NEEDED
  7. TENOFOV [Concomitant]
  8. CLONAZEPAM [Concomitant]
  9. SEROQUEL [Concomitant]
     Indication: POST-TRAUMATIC STRESS DISORDER
  10. CHANTIX [Concomitant]
     Dates: start: 20070620
  11. NEXIUM [Suspect]
     Route: 048
     Dates: start: 20070305
  12. PREVACID [Concomitant]
     Indication: GASTROOESOPHAGEAL REFLUX DISEASE
     Dates: start: 20010101, end: 20030101
  13. TRAVADA [Concomitant]
  14. NEXIUM [Suspect]
     Indication: GASTROOESOPHAGEAL REFLUX DISEASE
     Dosage: TWO TIMES DAILY
     Route: 048
     Dates: start: 20010101, end: 20030101
  15. ZANTAC [Concomitant]
  16. ZOLOFT [Concomitant]
     Indication: POST-TRAUMATIC STRESS DISORDER
  17. ZOLOFT [Concomitant]
     Indication: BIPOLAR DISORDER
  18. ZOLOFT [Concomitant]
     Indication: DEPRESSION
  19. SEROQUEL [Concomitant]
     Indication: DEPRESSION
  20. HYDROCODONE BITARTRATE AND ACETAMINOPHEN [Concomitant]
     Dosage: 5-325
     Dates: start: 20090406
  21. NEXIUM [Suspect]
     Route: 048
     Dates: start: 20030101
  22. CALCIUM CARBONATE [Concomitant]
     Indication: OSTEOPENIA
  23. EFAVIRENZ [Concomitant]
  24. ZYRTEC [Concomitant]
     Dates: start: 20070620
  25. SEROQUEL [Concomitant]
     Indication: BIPOLAR DISORDER
  26. ROLAIDS [Concomitant]

REACTIONS (8)
  - OSTEOPOROSIS [None]
  - OSTEOPENIA [None]
  - BIPOLAR DISORDER [None]
  - ULNA FRACTURE [None]
  - WRIST FRACTURE [None]
  - FRACTURE [None]
  - ANKLE FRACTURE [None]
  - EMOTIONAL DISTRESS [None]
